FAERS Safety Report 5819411-2 (Version None)
Quarter: 2008Q3

REPORT INFORMATION
  Report Type: 
  Country: None (occurrence: None)
  Receive Date: 20080723
  Receipt Date: 20080717
  Transmission Date: 20090109
  Serious: Yes (Death)
  Sender: FDA-Public Use
  Company Number: US-AMGEN-US295473

PATIENT
  Sex: Male

DRUGS (12)
  1. VECTIBIX [Suspect]
     Indication: DRUG USE FOR UNKNOWN INDICATION
     Route: 042
     Dates: start: 20071024, end: 20080521
  2. PANCREATIN TRIPLE STRENGTH CAP [Concomitant]
     Route: 065
  3. WARFARIN SODIUM [Concomitant]
     Route: 065
  4. TEMAZEPAM [Concomitant]
     Route: 065
  5. PREVACID [Concomitant]
     Route: 065
  6. FEXOFENADINE [Concomitant]
     Route: 065
  7. HYDROCODONE BITARTRATE [Concomitant]
     Route: 065
  8. LEXAPRO [Concomitant]
     Route: 065
  9. MEGACE [Concomitant]
     Route: 065
  10. MIRTAZAPINE [Concomitant]
     Route: 065
  11. PROSCAR [Concomitant]
     Route: 065
  12. PROPRANOLOL [Concomitant]
     Route: 065

REACTIONS (1)
  - DEATH [None]
